FAERS Safety Report 4709517-3 (Version None)
Quarter: 2005Q3

REPORT INFORMATION
  Report Type: 
  Country: None (occurrence: None)
  Receive Date: 20050706
  Receipt Date: 20050623
  Transmission Date: 20060218
  Serious: Yes (Congenital Anomaly, Other)
  Sender: FDA-Public Use
  Company Number: 2005093363

PATIENT
  Sex: Female
  Weight: 1.5 kg

DRUGS (2)
  1. DEPO-PROVERA [Suspect]
     Indication: CONTRACEPTION
     Dosage: SEE IMAGE
     Route: 064
     Dates: start: 20020101, end: 20020101
  2. DEPO-PROVERA [Suspect]
     Indication: CONTRACEPTION
     Dosage: SEE IMAGE
     Route: 064
     Dates: start: 20040812, end: 20040812

REACTIONS (8)
  - ALPHA 1 FOETOPROTEIN INCREASED [None]
  - CAESAREAN SECTION [None]
  - CONGENITAL ANOMALY [None]
  - DRUG EXPOSURE DURING PREGNANCY [None]
  - HEAD CIRCUMFERENCE ABNORMAL [None]
  - MICROCEPHALY [None]
  - PREMATURE BABY [None]
  - SMALL FOR DATES BABY [None]
